FAERS Safety Report 16885849 (Version 3)
Quarter: 2019Q4

REPORT INFORMATION
  Report Type: Spontaneous
  Country: JP (occurrence: JP)
  Receive Date: 20191004
  Receipt Date: 20191106
  Transmission Date: 20200122
  Serious: Yes (Hospitalization, Other)
  Sender: FDA-Public Use
  Company Number: JP-ELI_LILLY_AND_COMPANY-JP201910001491

PATIENT
  Sex: Male

DRUGS (6)
  1. SILODOSIN. [Concomitant]
     Active Substance: SILODOSIN
     Dosage: 8 MG, DAILY
     Route: 048
  2. AMLODIPINE [Concomitant]
     Active Substance: AMLODIPINE BESYLATE
     Route: 048
  3. AVOLVE [Concomitant]
     Active Substance: DUTASTERIDE
     Dosage: 1 DOSAGE FORM, DAILY
     Route: 048
  4. NATRIX [Concomitant]
     Active Substance: INDAPAMIDE
     Route: 048
  5. ZALUTIA [Suspect]
     Active Substance: TADALAFIL
     Indication: BENIGN PROSTATIC HYPERPLASIA
     Dosage: 5 MG, DAILY
     Route: 048
     Dates: start: 20181026, end: 20191011
  6. MICARDIS [Concomitant]
     Active Substance: TELMISARTAN
     Route: 048

REACTIONS (2)
  - Anaemia [Unknown]
  - Renal disorder [Unknown]
